FAERS Safety Report 5522616-1 (Version None)
Quarter: 2007Q4

REPORT INFORMATION
  Report Type: 
  Country: None (occurrence: None)
  Receive Date: 20071120
  Receipt Date: 20071112
  Transmission Date: 20080405
  Serious: Yes (Hospitalization)
  Sender: FDA-Public Use
  Company Number: JP-PFIZER INC-2007095874

PATIENT
  Age: 65 Year
  Sex: Female

DRUGS (10)
  1. VIBRAMYCIN [Suspect]
     Route: 048
  2. LOXONIN [Concomitant]
  3. THYREOID [Concomitant]
  4. DIOVAN [Concomitant]
  5. SIMVASTATIN [Concomitant]
  6. TAMOXIFEN CITRATE [Concomitant]
  7. CLARITHROMYCIN [Concomitant]
  8. EBASTEL [Concomitant]
  9. TEPRENONE [Concomitant]
  10. EVAMYL [Concomitant]

REACTIONS (1)
  - OCULOMUCOCUTANEOUS SYNDROME [None]
